FAERS Safety Report 18626885 (Version 2)
Quarter: 2021Q1

REPORT INFORMATION
  Report Type: Report from Study
  Country: JP (occurrence: JP)
  Receive Date: 20201217
  Receipt Date: 20210217
  Transmission Date: 20210419
  Serious: Yes (Death, Life-Threatening, Hospitalization, Other)
  Sender: FDA-Public Use
  Company Number: JP-AMGEN-JPNCT2020203257

PATIENT
  Age: 61 Year
  Sex: Male

DRUGS (20)
  1. DARBEPOETIN ALFA [Suspect]
     Active Substance: DARBEPOETIN ALFA
     Indication: MYELODYSPLASTIC SYNDROME
     Dosage: 240 MICROGRAM, Q4WK
     Route: 058
     Dates: start: 20191219, end: 20200116
  2. DARBEPOETIN ALFA [Suspect]
     Active Substance: DARBEPOETIN ALFA
     Dosage: 240 MICROGRAM, Q2WK
     Route: 058
     Dates: start: 20191003, end: 20191029
  3. MEROPENEM. [Concomitant]
     Active Substance: MEROPENEM
     Dosage: 3 G
     Route: 065
     Dates: start: 20200121, end: 20200303
  4. CALONAL [Concomitant]
     Active Substance: ACETAMINOPHEN
     Dosage: 400 MG
     Route: 048
     Dates: start: 20191102, end: 20191106
  5. POLARAMINE [Concomitant]
     Active Substance: DEXCHLORPHENIRAMINE MALEATE
     Dosage: 5 MG
     Route: 065
     Dates: start: 20200128, end: 20200128
  6. CEFEPIME HYDROCHLORIDE. [Suspect]
     Active Substance: CEFEPIME HYDROCHLORIDE
     Indication: PRODUCT USED FOR UNKNOWN INDICATION
     Dosage: 6 G
     Route: 041
     Dates: start: 20190911, end: 20191026
  7. MEROPENEM. [Concomitant]
     Active Substance: MEROPENEM
     Dosage: 3 G
     Route: 065
     Dates: start: 20191026, end: 20191226
  8. DARBEPOETIN ALFA [Suspect]
     Active Substance: DARBEPOETIN ALFA
     Dosage: 240 MICROGRAM, QWK
     Route: 058
     Dates: start: 20190627, end: 20190718
  9. DARBEPOETIN ALFA [Suspect]
     Active Substance: DARBEPOETIN ALFA
     Dosage: 240 MICROGRAM, QWK
     Route: 058
     Dates: start: 20191107, end: 20191212
  10. VANCOMYCIN HYDROCHLORIDE. [Concomitant]
     Active Substance: VANCOMYCIN HYDROCHLORIDE
     Dosage: 1 G
     Route: 065
     Dates: start: 20200121, end: 20200302
  11. LEVOFLOXACIN HEMIHYDRATE [Concomitant]
     Active Substance: LEVOFLOXACIN
     Dosage: 500 MG
     Route: 048
     Dates: start: 20191102, end: 20191106
  12. EPINASTINE HYDROCHLORIDE. [Concomitant]
     Active Substance: EPINASTINE HYDROCHLORIDE
     Indication: INTERSTITIAL LUNG DISEASE
     Dosage: 20 MG
     Route: 048
  13. VANCOMYCIN HYDROCHLORIDE. [Concomitant]
     Active Substance: VANCOMYCIN HYDROCHLORIDE
     Dosage: 1 G
     Route: 065
     Dates: start: 20191219, end: 20191226
  14. PIRESPA [Concomitant]
     Active Substance: PIRFENIDONE
     Indication: INTERSTITIAL LUNG DISEASE
     Dosage: 1200 MG
     Route: 048
  15. CALONAL [Concomitant]
     Active Substance: ACETAMINOPHEN
     Dosage: 400 MG
     Route: 048
     Dates: start: 20190918
  16. DARBEPOETIN ALFA [Suspect]
     Active Substance: DARBEPOETIN ALFA
     Dosage: 240 MICROGRAM, Q2WK
     Route: 058
     Dates: start: 20190509, end: 20190620
  17. MEDICON [DEXTROMETHORPHAN HYDROBROMIDE] [Concomitant]
     Active Substance: DEXTROMETHORPHAN HYDROBROMIDE
     Dosage: 30 MG
     Route: 048
     Dates: start: 20191102, end: 20191102
  18. DARBEPOETIN ALFA [Suspect]
     Active Substance: DARBEPOETIN ALFA
     Dosage: 240 MICROGRAM, QWK
     Route: 058
     Dates: start: 20190801, end: 20190808
  19. DARBEPOETIN ALFA [Suspect]
     Active Substance: DARBEPOETIN ALFA
     Dosage: 240 MICROGRAM, Q2WK
     Route: 058
     Dates: start: 20190829, end: 20190912
  20. SENNOSIDE A+B CALCIUM [Concomitant]
     Active Substance: SENNOSIDES A AND B
     Indication: CONSTIPATION
     Dosage: 24 MG
     Route: 048
     Dates: start: 20191229

REACTIONS (7)
  - Hepatic function abnormal [Recovered/Resolved]
  - Constipation [Recovering/Resolving]
  - Febrile neutropenia [Recovering/Resolving]
  - Bronchitis [Recovering/Resolving]
  - Pneumonia [Recovering/Resolving]
  - Disease progression [Fatal]
  - Urticaria [Recovering/Resolving]

NARRATIVE: CASE EVENT DATE: 20190911
